FAERS Safety Report 4420018-2 (Version None)
Quarter: 2004Q3

REPORT INFORMATION
  Report Type: 
  Country: None (occurrence: None)
  Receive Date: 20040804
  Receipt Date: 20040723
  Transmission Date: 20050211
  Serious: Yes (Life-Threatening)
  Sender: FDA-Public Use
  Company Number: MAG-2004-0000282

PATIENT
  Age: 41 Year
  Sex: Female

DRUGS (1)
  1. POVIDONE IODINE [Suspect]
     Indication: PREOPERATIVE CARE
     Dosage: SINGLE, TOPICAL
     Route: 061

REACTIONS (5)
  - ANGIONEUROTIC OEDEMA [None]
  - PRURITUS [None]
  - RASH PAPULAR [None]
  - SKIN TEST POSITIVE [None]
  - URTICARIA GENERALISED [None]
